FAERS Safety Report 10897786 (Version 1)
Quarter: 2015Q1

REPORT INFORMATION
  Report Type: Report from Study
  Country: ES (occurrence: ES)
  Receive Date: 20150309
  Receipt Date: 20150309
  Transmission Date: 20150721
  Serious: Yes (Death, Other)
  Sender: FDA-Public Use
  Company Number: ES-ACTAVIS-2015-04330

PATIENT
  Age: 30 Year
  Sex: Male
  Weight: 66 kg

DRUGS (16)
  1. NEUPOGEN [Suspect]
     Active Substance: FILGRASTIM
     Dosage: UNKNOWN
     Route: 065
     Dates: start: 20140721, end: 20140802
  2. MAXIDEX [Concomitant]
     Active Substance: DEXAMETHASONE
     Indication: PROPHYLAXIS
     Dosage: 2 GTT DROP(S), TID
     Route: 031
     Dates: start: 20140707, end: 20140716
  3. RANITIDINE [Concomitant]
     Active Substance: RANITIDINE\RANITIDINE HYDROCHLORIDE
     Indication: PROPHYLAXIS AGAINST GASTROINTESTINAL ULCER
     Dosage: 150 MG, BID
     Route: 048
     Dates: start: 20140707, end: 20140804
  4. PRIMPERAN [Concomitant]
     Active Substance: METOCLOPRAMIDE HYDROCHLORIDE
     Indication: PROPHYLAXIS OF NAUSEA AND VOMITING
     Dosage: 10 MG, TID
     Route: 042
     Dates: start: 20140707, end: 20140717
  5. NEUPOGEN [Suspect]
     Active Substance: FILGRASTIM
     Indication: PRODUCT USED FOR UNKNOWN INDICATION
     Dosage: 300 ?G, CYCLICAL (DAYS 1-3, CYCLIC)
     Route: 058
     Dates: start: 20140707, end: 20140709
  6. CIPROFLOXACIN. [Concomitant]
     Active Substance: CIPROFLOXACIN
     Indication: PROPHYLAXIS
     Dosage: 500 MG, DAILY
     Route: 048
     Dates: start: 20140707, end: 20140713
  7. ACETAMINOPHEN. [Concomitant]
     Active Substance: ACETAMINOPHEN
     Indication: PROPHYLAXIS
     Dosage: 1 G, TID
     Route: 042
     Dates: start: 20140707, end: 20140804
  8. FLUDARABINE [Suspect]
     Active Substance: FLUDARABINE PHOSPHATE
     Indication: ACUTE LYMPHOCYTIC LEUKAEMIA
     Dosage: 50 MG, CYCLICAL (DAYS 2-6, 4 WEEK CYCLE)
     Route: 042
     Dates: start: 20140708, end: 20140712
  9. SEPTRIN [Concomitant]
     Active Substance: SULFAMETHOXAZOLE\TRIMETHOPRIM
     Indication: ANTIFUNGAL PROPHYLAXIS
     Dosage: 160/800 ?G, 3 TIMES A WEEK
     Route: 048
     Dates: start: 20140707, end: 20140804
  10. CYTARABINE. [Suspect]
     Active Substance: CYTARABINE
     Indication: ACUTE LYMPHOCYTIC LEUKAEMIA
     Dosage: 3.4 G, CYCLICAL (DAYS 1-6, 4 WEEK CYCLE)
     Route: 042
     Dates: start: 20140707, end: 20140712
  11. ALOXI [Concomitant]
     Active Substance: PALONOSETRON HYDROCHLORIDE
     Indication: PROPHYLAXIS OF NAUSEA AND VOMITING
     Dosage: 250 ?G, EVERY 48 HOURS
     Route: 042
     Dates: start: 20140707, end: 20140709
  12. ZOVIRAX [Concomitant]
     Active Substance: ACYCLOVIR
     Indication: ANTIVIRAL PROPHYLAXIS
     Dosage: 400 MG, BID
     Route: 048
     Dates: start: 20140707, end: 20140804
  13. BENADON [Concomitant]
     Active Substance: PYRIDOXINE HYDROCHLORIDE
     Indication: VITAMIN SUPPLEMENTATION
     Dosage: 300 MG, DAILY
     Route: 042
     Dates: start: 20140707, end: 20140712
  14. NOXAFIL [Concomitant]
     Active Substance: POSACONAZOLE
     Indication: ANTIFUNGAL PROPHYLAXIS
     Dosage: 200 MG, TID
     Route: 065
     Dates: start: 20140707, end: 20140723
  15. DEXAMETHASONE. [Concomitant]
     Active Substance: DEXAMETHASONE
     Indication: PROPHYLAXIS
     Dosage: 4 MG, DAILY
     Route: 048
     Dates: start: 20140707, end: 20140720
  16. TOBRAMYCIN. [Concomitant]
     Active Substance: TOBRAMYCIN
     Indication: EYE INFECTION BACTERIAL
     Dosage: 1 GTT DROP(S), TID
     Route: 031
     Dates: start: 20140712, end: 20140715

REACTIONS (2)
  - Febrile neutropenia [Recovered/Resolved]
  - Multi-organ failure [Fatal]

NARRATIVE: CASE EVENT DATE: 20140713
